FAERS Safety Report 4615915-9 (Version None)
Quarter: 2005Q1

REPORT INFORMATION
  Report Type: 
  Country: None (occurrence: None)
  Receive Date: 20050318
  Receipt Date: 20050315
  Transmission Date: 20050727
  Serious: Yes (Hospitalization)
  Sender: FDA-Public Use
  Company Number: J081-002-001894

PATIENT
  Age: 77 Year
  Sex: Male
  Weight: 55.4 kg

DRUGS (9)
  1. ARICEPT [Suspect]
     Indication: DEMENTIA ALZHEIMER'S TYPE
     Dosage: ORAL
     Route: 048
     Dates: end: 20050228
  2. TANATRIL        (IMIDAPRIL HYDROCHLORIDE) [Concomitant]
  3. PRIMOBOLAN              (METENOLONE ACETATE) [Concomitant]
  4. ALDACTONE [Concomitant]
  5. LASIX [Concomitant]
  6. NORVASC [Concomitant]
  7. DETANTOL R (BUNAZOSIN HYDROCHLORIDE) [Concomitant]
  8. ALLOPURINOL [Concomitant]
  9. HUMACART 3/7 (INSULIN HUMAN) [Concomitant]

REACTIONS (5)
  - DEMENTIA [None]
  - DIABETES MELLITUS INADEQUATE CONTROL [None]
  - PYREXIA [None]
  - RHABDOMYOLYSIS [None]
  - VOMITING [None]
